FAERS Safety Report 14306609 (Version 3)
Quarter: 2018Q1

REPORT INFORMATION
  Report Type: Spontaneous
  Country: US (occurrence: US)
  Receive Date: 20171220
  Receipt Date: 20180228
  Transmission Date: 20180509
  Serious: No
  Sender: FDA-Public Use
  Company Number: US-BIOGEN-2017BI00496034

PATIENT
  Age: 46 Year
  Sex: Female

DRUGS (2)
  1. TYSABRI [Suspect]
     Active Substance: NATALIZUMAB
     Indication: MULTIPLE SCLEROSIS
     Dosage: INFUSED OVER 1 HOUR
     Route: 042
  2. TYSABRI [Suspect]
     Active Substance: NATALIZUMAB
     Route: 065
     Dates: start: 20171026, end: 20171129

REACTIONS (13)
  - Discomfort [Not Recovered/Not Resolved]
  - Sensory disturbance [Recovered/Resolved]
  - Visual impairment [Recovered/Resolved]
  - Prescribed underdose [Unknown]
  - Weight increased [Not Recovered/Not Resolved]
  - Drug ineffective [Not Recovered/Not Resolved]
  - Mood swings [Unknown]
  - Vision blurred [Not Recovered/Not Resolved]
  - Skin ulcer [Recovered/Resolved]
  - Pain [Not Recovered/Not Resolved]
  - Peripheral swelling [Not Recovered/Not Resolved]
  - Headache [Unknown]
  - Hemianaesthesia [Recovered/Resolved]

NARRATIVE: CASE EVENT DATE: 201711
